FAERS Safety Report 15135334 (Version 1)
Quarter: 2018Q3

REPORT INFORMATION
  Report Type: Spontaneous
  Country: DE (occurrence: DE)
  Receive Date: 20180712
  Receipt Date: 20180712
  Transmission Date: 20181010
  Serious: Yes (Death, Hospitalization, Other)
  Sender: FDA-Public Use
  Company Number: DE-SAKK-2018SA153398AA

PATIENT
  Age: 70 Year
  Sex: Male

DRUGS (6)
  1. ANTI?THYMOCYTE GLOBULIN (RABBIT) NOS [Suspect]
     Active Substance: LAPINE T-LYMPHOCYTE IMMUNE GLOBULIN
     Indication: ACUTE MYELOID LEUKAEMIA
     Dosage: , 10 MG/KG OF BODY WEIGHT/DAY, DAYS 5 TO 210 MG/KG, QD
     Route: 042
  2. MITOXANTRONE [Suspect]
     Active Substance: MITOXANTRONE HYDROCHLORIDE
     Indication: ACUTE MYELOID LEUKAEMIA
     Dosage: 30 MG/M2, QD, 30 MG/M2/DAY I.V., DAYS ?1 AND ?5
     Route: 042
  3. MELPHALAN. [Suspect]
     Active Substance: MELPHALAN
     Indication: ACUTE MYELOID LEUKAEMIA
     Dosage: 150 MG/M2, 150 MG/M2, ON DAY 2
     Route: 042
  4. CYTARABINE. [Suspect]
     Active Substance: CYTARABINE
     Indication: ACUTE MYELOID LEUKAEMIA
     Dosage: 2000 MG/M2, QD, 2,000 MG/M2/DAY I.V. B.I.D., DAYS 1 AND 5
     Route: 042
  5. POSACONAZOLE [Concomitant]
     Active Substance: POSACONAZOLE
     Indication: ANTIFUNGAL PROPHYLAXIS
     Dosage: 200 MG, QD, 200 MG P.O. T.I.D.
     Route: 048
  6. FLUDARABINE PHOSPHATE. [Suspect]
     Active Substance: FLUDARABINE PHOSPHATE
     Indication: ACUTE MYELOID LEUKAEMIA
     Dosage: 30 MG/M2, QD, 30 MG/M2/DAY, DAYS ?6 TO ?2

REACTIONS (8)
  - Multiple organ dysfunction syndrome [Unknown]
  - C-reactive protein increased [Unknown]
  - Abscess fungal [Unknown]
  - Septic shock [Unknown]
  - Off label use [Unknown]
  - Bronchopulmonary aspergillosis [Fatal]
  - Aspergillus infection [Unknown]
  - Febrile neutropenia [Unknown]
